FAERS Safety Report 8529422-4 (Version None)
Quarter: 2012Q2

REPORT INFORMATION
  Report Type: 
  Country: None (occurrence: None)
  Receive Date: 20120409
  Receipt Date: 20110524
  Transmission Date: 20120825
  Serious: Yes (Death)
  Sender: FDA-Public Use
  Company Number: 2011-236

PATIENT
  Age: 60 Year
  Sex: Male

DRUGS (19)
  1. POTASSIUM CHLORIDE [Concomitant]
  2. PLAVIX [Concomitant]
  3. ALBUTEROL SULFATE AND IPRATROPIUM BROMIDE (IPRATROPIUM BROMIDE, SALBUT [Concomitant]
  4. DIPRIVAN [Concomitant]
  5. PREVACID [Concomitant]
  6. SODIUM PHOSPHATES /01546201/ (SODIUM PHOSPHATE DIBASIC, SODIUM PHOSPHA [Concomitant]
  7. LEVOPHED [Concomitant]
  8. LEVAQUIN [Concomitant]
  9. NOVOLOG [Concomitant]
  10. MAGNESIUM SULFATE [Concomitant]
  11. POTASSIUM PHOSPHATES (POTASSIUM PHOSPHATE MONOBASIC) [Concomitant]
  12. LOVENOX [Concomitant]
  13. DEPAKENE /00228501/ (VALPROIC ACID) [Concomitant]
  14. FAZACLO ODT [Suspect]
     Dosage: 600 MG, QD, ORAL
     Route: 048
     Dates: start: 20110301, end: 20110426
  15. COGENTIN [Concomitant]
  16. PULMOZYME [Concomitant]
  17. ZOSYN [Concomitant]
  18. LOPRESSOR [Concomitant]
  19. CORDARONE [Concomitant]

REACTIONS (1)
  - ACUTE RESPIRATORY FAILURE [None]
